FAERS Safety Report 14229531 (Version 2)
Quarter: 2018Q1

REPORT INFORMATION
  Report Type: Spontaneous
  Country: US (occurrence: US)
  Receive Date: 20171128
  Receipt Date: 20180212
  Transmission Date: 20180508
  Serious: No
  Sender: FDA-Public Use
  Company Number: US-ELI_LILLY_AND_COMPANY-US201711010852

PATIENT
  Sex: Female

DRUGS (1)
  1. HUMULIN N [Suspect]
     Active Substance: INSULIN HUMAN
     Indication: GESTATIONAL DIABETES
     Dosage: UNK, UNKNOWN
     Route: 065

REACTIONS (2)
  - Drug dispensing error [Unknown]
  - Maternal exposure during pregnancy [Recovered/Resolved]
